FAERS Safety Report 20204642 (Version 1)
Quarter: 2021Q4

REPORT INFORMATION
  Report Type: Spontaneous
  Country: CA (occurrence: CA)
  Receive Date: 20211220
  Receipt Date: 20211220
  Transmission Date: 20220303
  Serious: Yes (Other)
  Sender: FDA-Public Use
  Company Number: CA-ABBVIE-21K-028-4202336-00

PATIENT
  Age: 41 Year
  Sex: Female

DRUGS (8)
  1. RINVOQ [Suspect]
     Active Substance: UPADACITINIB
     Indication: Rheumatoid arthritis
     Route: 048
  2. PLAQUENIL [Suspect]
     Active Substance: HYDROXYCHLOROQUINE SULFATE
     Indication: Product used for unknown indication
     Route: 065
     Dates: start: 2019
  3. ORENCIA [Suspect]
     Active Substance: ABATACEPT
     Indication: Product used for unknown indication
     Route: 065
  4. ACTEMRA [Suspect]
     Active Substance: TOCILIZUMAB
     Indication: Product used for unknown indication
     Route: 065
     Dates: start: 202110, end: 202111
  5. METHOTREXATE SODIUM [Suspect]
     Active Substance: METHOTREXATE SODIUM
     Indication: Product used for unknown indication
     Route: 065
     Dates: start: 2019
  6. PENICILLIN [Suspect]
     Active Substance: PENICILLIN
     Indication: Product used for unknown indication
     Route: 065
  7. SULFASALAZINE [Suspect]
     Active Substance: SULFASALAZINE
     Indication: Product used for unknown indication
     Route: 065
  8. ARAVA [Concomitant]
     Active Substance: LEFLUNOMIDE
     Indication: Product used for unknown indication

REACTIONS (7)
  - Epilepsy [Unknown]
  - Unevaluable event [Unknown]
  - Drug ineffective [Unknown]
  - Drug ineffective [Unknown]
  - Drug hypersensitivity [Unknown]
  - Drug hypersensitivity [Unknown]
  - Drug ineffective [Unknown]
